FAERS Safety Report 17993936 (Version 1)
Quarter: 2020Q3

REPORT INFORMATION
  Report Type: Spontaneous
  Country: US (occurrence: US)
  Receive Date: 20200707
  Receipt Date: 20200707
  Transmission Date: 20201103
  Serious: No
  Sender: FDA-Public Use
  Company Number: None

PATIENT
  Age: 59 Year
  Sex: Male
  Weight: 85.5 kg

DRUGS (3)
  1. DOXACYCLINE FOR 15 DAYS [Concomitant]
  2. SULFAMETHOXAZOLE AND TRIMETHOPRIM [Suspect]
     Active Substance: SULFAMETHOXAZOLE\TRIMETHOPRIM
     Indication: PROSTATE INFECTION
     Dosage: ?          QUANTITY:1 TABLET(S);?
     Route: 048
     Dates: start: 20200611, end: 20200613
  3. ALFUZOSIN DIURETIC FOR NEXT 5 MONTHS [Concomitant]

REACTIONS (7)
  - Pain [None]
  - Influenza like illness [None]
  - Headache [None]
  - Malaise [None]
  - Pyrexia [None]
  - Viral infection [None]
  - Chills [None]

NARRATIVE: CASE EVENT DATE: 20200611
